FAERS Safety Report 10334134 (Version 1)
Quarter: 2014Q3

REPORT INFORMATION
  Report Type: Spontaneous
  Country: US (occurrence: None)
  Receive Date: 20140721
  Receipt Date: 20140721
  Transmission Date: 20150326
  Serious: No
  Sender: FDA-Public Use
  Company Number: None

PATIENT
  Age: 34 Year
  Sex: Female
  Weight: 57.15 kg

DRUGS (1)
  1. DISULFIRAM. [Suspect]
     Active Substance: DISULFIRAM
     Indication: ALCOHOLISM
     Dosage: 1 PILL ONCE DAILY

REACTIONS (5)
  - Scratch [None]
  - Pruritus generalised [None]
  - Erythema [None]
  - Swelling face [None]
  - Feeling hot [None]

NARRATIVE: CASE EVENT DATE: 20140714
